FAERS Safety Report 13817605 (Version 1)
Quarter: 2017Q3

REPORT INFORMATION
  Report Type: Spontaneous
  Country: CA (occurrence: CA)
  Receive Date: 20170731
  Receipt Date: 20170731
  Transmission Date: 20171127
  Serious: Yes (Other)
  Sender: FDA-Public Use
  Company Number: CA-MYLANLABS-2017M1044180

PATIENT

DRUGS (5)
  1. CONTRACEPTIVES [Concomitant]
     Active Substance: UNSPECIFIED INGREDIENT
     Indication: PRODUCT USED FOR UNKNOWN INDICATION
     Dosage: UNK
  2. MULTIVITAMINES AND MINERALS [Concomitant]
     Indication: PRODUCT USED FOR UNKNOWN INDICATION
     Dosage: UNK
  3. DEXEDRINE [Suspect]
     Active Substance: DEXTROAMPHETAMINE SULFATE
     Indication: ATTENTION DEFICIT/HYPERACTIVITY DISORDER
     Dosage: 15 MG, UNK
  4. FLUVOXAMINE [Suspect]
     Active Substance: FLUVOXAMINE
     Indication: PRODUCT USED FOR UNKNOWN INDICATION
     Dosage: 100 MG, QD
  5. MELATONIN [Concomitant]
     Active Substance: MELATONIN
     Indication: PRODUCT USED FOR UNKNOWN INDICATION
     Dosage: UNK

REACTIONS (10)
  - Dyspnoea [Unknown]
  - Condition aggravated [Unknown]
  - Dry mouth [Unknown]
  - Vomiting [Unknown]
  - Tremor [Unknown]
  - Insomnia [Unknown]
  - Drug interaction [Unknown]
  - Nausea [Unknown]
  - Serotonin syndrome [Unknown]
  - Headache [Unknown]
